FAERS Safety Report 5495669-7 (Version None)
Quarter: 2007Q4

REPORT INFORMATION
  Report Type: 
  Country: None (occurrence: None)
  Receive Date: 20071015
  Receipt Date: 20070524
  Transmission Date: 20080405
  Serious: Yes (Other)
  Sender: FDA-Public Use
  Company Number: S07-USA-02239-01

PATIENT
  Age: 58 Year
  Sex: Male

DRUGS (4)
  1. LEXAPRO [Suspect]
     Dates: start: 20070401
  2. COUMADIN [Concomitant]
  3. NEXIUM [Concomitant]
  4. LOVASTATIN [Concomitant]

REACTIONS (4)
  - AGGRESSION [None]
  - ANGER [None]
  - ANXIETY [None]
  - PARANOIA [None]
